FAERS Safety Report 24680472 (Version 3)
Quarter: 2025Q3

REPORT INFORMATION
  Report Type: Spontaneous
  Country: US (occurrence: US)
  Receive Date: 20241129
  Receipt Date: 20250810
  Transmission Date: 20251021
  Serious: Yes (Other)
  Sender: ALEXION PHARMACEUTICALS
  Company Number: US-AstraZeneca-CH-00754451A

PATIENT
  Age: 87 Year
  Sex: Male
  Weight: 63.049 kg

DRUGS (9)
  1. TEZSPIRE [Suspect]
     Active Substance: TEZEPELUMAB-EKKO
     Indication: Asthma
     Dates: start: 20241016, end: 20241120
  2. TEZSPIRE [Suspect]
     Active Substance: TEZEPELUMAB-EKKO
  3. ALBUTEROL SULFATE [Concomitant]
     Active Substance: ALBUTEROL SULFATE
  4. ATENOLOL [Concomitant]
     Active Substance: ATENOLOL
  5. FAMOTIDINE [Concomitant]
     Active Substance: FAMOTIDINE
  6. IPRATROPIUM [Concomitant]
     Active Substance: IPRATROPIUM
  7. PIMECROLIMUS [Concomitant]
     Active Substance: PIMECROLIMUS
  8. PREDNISONE [Concomitant]
     Active Substance: PREDNISONE
  9. TAMSULOSIN [Concomitant]
     Active Substance: TAMSULOSIN

REACTIONS (6)
  - Chest pain [Recovered/Resolved]
  - Myocardial infarction [Unknown]
  - Ventricular extrasystoles [Unknown]
  - Hypertension [Unknown]
  - Extrasystoles [Unknown]
  - Supraventricular tachycardia [Unknown]

NARRATIVE: CASE EVENT DATE: 20241016
